FAERS Safety Report 25658701 (Version 1)
Quarter: 2025Q3

REPORT INFORMATION
  Report Type: Spontaneous
  Country: US (occurrence: US)
  Receive Date: 20250808
  Receipt Date: 20250808
  Transmission Date: 20251020
  Serious: Yes (Hospitalization, Other)
  Sender: ZYDUS PHARM
  Company Number: US-CADILA HEALTHCARE LIMITED-US-ZYDUS-126848

PATIENT

DRUGS (1)
  1. LOPERAMIDE [Suspect]
     Active Substance: LOPERAMIDE
     Indication: Prophylaxis
     Route: 065

REACTIONS (5)
  - Seizure [Unknown]
  - Cardiotoxicity [Unknown]
  - Ventricular arrhythmia [Unknown]
  - Overdose [Unknown]
  - Drug abuse [Unknown]
